FAERS Safety Report 7745253-7 (Version None)
Quarter: 2011Q3

REPORT INFORMATION
  Report Type: 
  Country: None (occurrence: None)
  Receive Date: 20110819
  Receipt Date: 20110714
  Transmission Date: 20111222
  Serious: No
  Sender: FDA-Public Use
  Company Number: 037388

PATIENT
  Sex: Male

DRUGS (1)
  1. LACOSAMIDE [Suspect]
     Dosage: (100 MG, 100MG DAILY)
     Dates: start: 20100212, end: 20110212

REACTIONS (1)
  - DRUG INEFFECTIVE [None]
